FAERS Safety Report 10171206 (Version 1)
Quarter: 2014Q2

REPORT INFORMATION
  Report Type: Spontaneous
  Country: US (occurrence: None)
  Receive Date: 20140425
  Receipt Date: 20140425
  Transmission Date: 20141212
  Serious: No
  Sender: FDA-Public Use
  Company Number: 2013SGN00536

PATIENT
  Sex: Female

DRUGS (2)
  1. ADCETRIS [Suspect]
     Indication: LYMPHOMA
  2. XALKORI (OTHER ANTINEOPLASTIC AGENTS) [Concomitant]

REACTIONS (1)
  - Oedema [None]
